FAERS Safety Report 5669893-4 (Version None)
Quarter: 2008Q1

REPORT INFORMATION
  Report Type: 
  Country: None (occurrence: None)
  Receive Date: 20080314
  Receipt Date: 20080314
  Transmission Date: 20080703
  Serious: Yes (Other)
  Sender: FDA-Public Use
  Company Number: None

PATIENT
  Age: 35 Year
  Sex: Female
  Weight: 123.3784 kg

DRUGS (1)
  1. TAMIFLU [Suspect]
     Indication: INFLUENZA
     Dosage: 75 MG BID PO
     Route: 048
     Dates: start: 20080302, end: 20080303

REACTIONS (5)
  - ATAXIA [None]
  - BALANCE DISORDER [None]
  - DYSGEUSIA [None]
  - FEELING ABNORMAL [None]
  - GAIT DISTURBANCE [None]
